FAERS Safety Report 20360839 (Version 1)
Quarter: 2022Q1

REPORT INFORMATION
  Report Type: Spontaneous
  Country: DE (occurrence: DE)
  Receive Date: 20220121
  Receipt Date: 20220121
  Transmission Date: 20220423
  Serious: Yes (Other)
  Sender: FDA-Public Use
  Company Number: None

PATIENT
  Age: 42 Year
  Sex: Female
  Weight: 69 kg

DRUGS (1)
  1. MIRENA [Suspect]
     Active Substance: LEVONORGESTREL
     Indication: Contraception
     Dosage: 20?G/DAY
     Route: 015
     Dates: start: 20151026, end: 20200824

REACTIONS (20)
  - Borderline ovarian tumour [Recovered/Resolved with Sequelae]
  - Hair growth abnormal [Recovering/Resolving]
  - Vision blurred [Recovering/Resolving]
  - Fluid retention [Recovering/Resolving]
  - Weight increased [Recovering/Resolving]
  - Mucosal inflammation [Recovering/Resolving]
  - Stomatitis [Recovering/Resolving]
  - Dry eye [Recovering/Resolving]
  - Exercise tolerance decreased [Recovering/Resolving]
  - Paraesthesia [Recovering/Resolving]
  - Restlessness [Recovering/Resolving]
  - Anxiety [Recovering/Resolving]
  - Paranasal sinus inflammation [Recovering/Resolving]
  - Skin discomfort [Unknown]
  - Vulvovaginal inflammation [Recovering/Resolving]
  - Sick leave [Unknown]
  - Asthenia [Recovering/Resolving]
  - Fatigue [Recovering/Resolving]
  - Hirsutism [Recovering/Resolving]
  - Eye inflammation [Recovering/Resolving]

NARRATIVE: CASE EVENT DATE: 20190701
